FAERS Safety Report 4483116-3 (Version None)
Quarter: 2004Q3

REPORT INFORMATION
  Report Type: 
  Country: None (occurrence: None)
  Receive Date: 20040921
  Receipt Date: 20040603
  Transmission Date: 20050211
  Serious: Yes (Hospitalization)
  Sender: FDA-Public Use
  Company Number: 163-20785-04060298

PATIENT
  Age: 61 Year
  Sex: Female
  Weight: 64.1 kg

DRUGS (21)
  1. THALOMID [Suspect]
     Indication: MULTIPLE MYELOMA
     Dosage: 200 MG, QD, ORAL
     Route: 048
     Dates: start: 20040523, end: 20040526
  2. BORTEZOMIB (UNKNOWN) [Suspect]
     Indication: MULTIPLE MYELOMA
     Dosage: 1.6 MG, INTRAVENOUS
     Route: 042
     Dates: start: 20040520, end: 20040520
  3. BORTEZOMIB (UNKNOWN) [Suspect]
     Indication: MULTIPLE MYELOMA
     Dosage: 1.6 MG, INTRAVENOUS
     Route: 042
     Dates: start: 20040523, end: 20040523
  4. BORTEZOMIB (UNKNOWN) [Suspect]
     Indication: MULTIPLE MYELOMA
     Dosage: 1.6 MG, INTRAVENOUS
     Route: 042
     Dates: start: 20040527, end: 20040527
  5. ACYCLOVIR (ACICLOVIR) (UNKNOWN) [Concomitant]
  6. FOLIC ACID [Concomitant]
  7. MULTIVITAMINS (MULTIVITAMINS) (UNKNOWN) [Concomitant]
  8. HEPARIN FLUSH (HEPARIN) (UNKNOWN) [Concomitant]
  9. NEXIUM [Concomitant]
  10. FLUCONAZOLE (FLUCONAZOLE) (UNKNOWN) [Concomitant]
  11. GATIFLOXACIN (GATIFLOXACIN) (UNKNOWN) [Concomitant]
  12. G-CSF (GRANULOCYTE COLONY STIMULATING FACTOR) (UNKNOWN) [Concomitant]
  13. LEVOTHYROXINE (LEVOTHYROXINE) (UNKNOWN) [Concomitant]
  14. SERTRALINE HCL [Concomitant]
  15. FENTANYL PATCH (FENTANYL) (UNKNOWN) [Concomitant]
  16. CETIRIZINE (CETIRIZINE) (UNKNOWN) [Concomitant]
  17. DEXAMETHASONE [Suspect]
     Indication: MULTIPLE MYELOMA
     Dosage: 40 MG, QD, ORAL
     Route: 048
     Dates: start: 20040523, end: 20040526
  18. CISPLATIN [Suspect]
     Indication: MULTIPLE MYELOMA
     Dosage: 16 MG, QD, INTRAVENOUS
     Route: 042
     Dates: start: 20040523, end: 20040526
  19. ADRIAMYCIN PFS [Suspect]
     Indication: MULTIPLE MYELOMA
     Dosage: 16 MG, QD, INTRAVENOUS
     Route: 042
     Dates: start: 20040523, end: 20040526
  20. CYCLOPHOSPHAMIDE [Suspect]
     Indication: MULTIPLE MYELOMA
     Dosage: 640 MG, QD, INTRAVENOUS
     Route: 042
     Dates: start: 20040523, end: 20040526
  21. ETOPOSIDE [Suspect]
     Indication: MULTIPLE MYELOMA
     Dosage: 64 MG, QD, INTRAVENOUS
     Route: 042
     Dates: start: 20040523, end: 20040526

REACTIONS (4)
  - DEHYDRATION [None]
  - DIARRHOEA [None]
  - PLATELET COUNT DECREASED [None]
  - SYNCOPE [None]
